FAERS Safety Report 9911957 (Version 1)
Quarter: 2014Q1

REPORT INFORMATION
  Report Type: Spontaneous
  Country: US (occurrence: US)
  Receive Date: 20140219
  Receipt Date: 20140219
  Transmission Date: 20141002
  Serious: No
  Sender: FDA-Public Use
  Company Number: US-MYLANLABS-2013S1024123

PATIENT
  Sex: Female

DRUGS (2)
  1. EPIPEN [Suspect]
     Indication: HYPERSENSITIVITY
  2. CORTICOSTEROID NOS [Suspect]

REACTIONS (3)
  - Drug ineffective [Recovered/Resolved]
  - Hypersensitivity [Recovered/Resolved]
  - Insomnia [Recovered/Resolved]
